FAERS Safety Report 9552233 (Version 2)
Quarter: 2014Q1

REPORT INFORMATION
  Report Type: Spontaneous
  Country: GB (occurrence: GB)
  Receive Date: 20130925
  Receipt Date: 20140219
  Transmission Date: 20141002
  Serious: Yes (Hospitalization)
  Sender: FDA-Public Use
  Company Number: GB-INCYTE CORPORATION-2013IN002126

PATIENT
  Age: 77 Year
  Sex: Male

DRUGS (1)
  1. JAKAVI [Suspect]
     Dosage: UNK

REACTIONS (1)
  - Urinary tract infection [Recovered/Resolved]
